FAERS Safety Report 8986096 (Version 1)
Quarter: 2012Q4

REPORT INFORMATION
  Report Type: Spontaneous
  Country: US (occurrence: None)
  Receive Date: 20121227
  Receipt Date: 20121227
  Transmission Date: 20130627
  Serious: No
  Sender: FDA-Public Use
  Company Number: None

PATIENT
  Age: 62 Year
  Sex: Male
  Weight: 72.58 kg

DRUGS (2)
  1. MORPHINE [Suspect]
     Dosage: IV
     Route: 042
  2. DILAUDID [Suspect]

REACTIONS (1)
  - No adverse event [None]
